FAERS Safety Report 21836892 (Version 10)
Quarter: 2024Q1

REPORT INFORMATION
  Report Type: Report from Study
  Country: US (occurrence: US)
  Receive Date: 20230109
  Receipt Date: 20240207
  Transmission Date: 20240410
  Serious: Yes (Other)
  Sender: FDA-Public Use
  Company Number: US-002147023-NVSC2023US001897

PATIENT
  Age: 56 Year
  Sex: Female

DRUGS (3)
  1. VIJOICE [Suspect]
     Active Substance: ALPELISIB
     Indication: PIK3CA related overgrowth spectrum
     Dosage: 50 MG, QD
     Route: 048
     Dates: start: 20230102
  2. VIJOICE [Suspect]
     Active Substance: ALPELISIB
     Dosage: 250 MG, QD, STARTED AT 50MG, INCREASED TO 125MG AND CURRENT
     Route: 048
     Dates: start: 20230102
  3. IRON [Concomitant]
     Active Substance: IRON
     Indication: Product used for unknown indication
     Dosage: UNK
     Route: 065

REACTIONS (21)
  - Colonic haematoma [Recovered/Resolved]
  - Brain stem haematoma [Recovered/Resolved]
  - Stress [Recovered/Resolved]
  - Tongue blistering [Unknown]
  - Sleep disorder [Unknown]
  - Migraine [Unknown]
  - Weight decreased [Recovered/Resolved]
  - Alopecia [Unknown]
  - Fatigue [Unknown]
  - Headache [Unknown]
  - Decreased appetite [Recovered/Resolved]
  - Diarrhoea [Recovered/Resolved]
  - Inappropriate schedule of product administration [Unknown]
  - Product distribution issue [Unknown]
  - Erythema [Unknown]
  - Swollen tongue [Unknown]
  - Tongue erythema [Unknown]
  - Mouth injury [Unknown]
  - Decreased appetite [Unknown]
  - Contusion [Unknown]
  - Glossodynia [Unknown]

NARRATIVE: CASE EVENT DATE: 20230102
